FAERS Safety Report 9111741 (Version 1)
Quarter: 2013Q1

REPORT INFORMATION
  Report Type: Spontaneous
  Country: US (occurrence: US)
  Receive Date: 20130219
  Receipt Date: 20130219
  Transmission Date: 20140127
  Serious: No
  Sender: FDA-Public Use
  Company Number: US-BRISTOL-MYERS SQUIBB COMPANY-16353062

PATIENT
  Age: 55 Year
  Sex: Female

DRUGS (2)
  1. ORENCIA [Suspect]
     Indication: RHEUMATOID ARTHRITIS
     Dosage: LAST INF:DEC11
     Route: 042
     Dates: start: 201111
  2. PREDNISONE [Suspect]

REACTIONS (3)
  - Bronchitis [Unknown]
  - Influenza [Unknown]
  - Haemorrhage subcutaneous [Unknown]
